FAERS Safety Report 10444205 (Version 1)
Quarter: 2014Q3

REPORT INFORMATION
  Report Type: Spontaneous
  Country: TR (occurrence: TR)
  Receive Date: 20140910
  Receipt Date: 20140910
  Transmission Date: 20150326
  Serious: Yes (Death)
  Sender: FDA-Public Use
  Company Number: TR-ROCHE-1459575

PATIENT
  Age: 14 Year
  Sex: Male

DRUGS (1)
  1. CELLCEPT [Suspect]
     Active Substance: MYCOPHENOLATE MOFETIL\MYCOPHENOLATE MOFETIL HYDROCHLORIDE
     Indication: STEM CELL TRANSPLANT
     Route: 048

REACTIONS (9)
  - Oedema [Fatal]
  - Abdominal distension [Fatal]
  - Renal failure [Fatal]
  - Off label use [Fatal]
  - Diarrhoea [Fatal]
  - Abdominal pain upper [Fatal]
  - Dizziness [Fatal]
  - Rash [Fatal]
  - Urinary bladder haemorrhage [Fatal]
